FAERS Safety Report 9387179 (Version 1)
Quarter: 2013Q3

REPORT INFORMATION
  Report Type: Spontaneous
  Country: AT (occurrence: AT)
  Receive Date: 20130708
  Receipt Date: 20130708
  Transmission Date: 20140515
  Serious: Yes (Life-Threatening)
  Sender: FDA-Public Use
  Company Number: AT-ROCHE-1244402

PATIENT
  Sex: Male

DRUGS (15)
  1. RIVOTRIL [Suspect]
     Indication: PRODUCT USED FOR UNKNOWN INDICATION
     Route: 048
     Dates: start: 20021122, end: 20021125
  2. RIVOTRIL [Suspect]
     Route: 048
     Dates: start: 20021204, end: 20021205
  3. DEPAKINE [Suspect]
     Indication: BIPOLAR I DISORDER
     Route: 048
     Dates: start: 20021105
  4. DEPAKINE [Suspect]
     Route: 048
     Dates: start: 20021107, end: 20021108
  5. DEPAKINE [Suspect]
     Route: 048
     Dates: start: 20021109, end: 20021204
  6. DEPAKINE [Suspect]
     Route: 048
     Dates: start: 20021208
  7. ZYPREXA [Suspect]
     Indication: PRODUCT USED FOR UNKNOWN INDICATION
     Route: 048
     Dates: start: 20021123, end: 20021205
  8. QUILONORM RETARD [Suspect]
     Indication: PRODUCT USED FOR UNKNOWN INDICATION
     Route: 048
     Dates: start: 20021123, end: 20021205
  9. NUBAIN [Suspect]
     Indication: SEDATION
     Route: 058
     Dates: start: 20021204
  10. HYOSCINE HYDROBROMIDE [Suspect]
     Indication: SEDATION
     Route: 058
     Dates: start: 20021204
  11. AUGMENTIN [Concomitant]
     Route: 048
     Dates: start: 20021127, end: 20021203
  12. AUGMENTIN [Concomitant]
     Route: 048
     Dates: start: 20021204, end: 20021206
  13. AUGMENTIN [Concomitant]
     Route: 048
     Dates: start: 20021207
  14. AKINETON [Concomitant]
     Route: 048
     Dates: start: 20021204, end: 20021205
  15. PANTOLOC [Concomitant]
     Route: 048
     Dates: start: 20021204

REACTIONS (2)
  - Cardiac arrest [Recovered/Resolved]
  - Cardiac failure [Recovered/Resolved]
